FAERS Safety Report 4972254-4 (Version None)
Quarter: 2006Q2

REPORT INFORMATION
  Report Type: 
  Country: None (occurrence: None)
  Receive Date: 20060413
  Receipt Date: 20060220
  Transmission Date: 20061013
  Serious: Yes (Other)
  Sender: FDA-Public Use
  Company Number: 2006UW02912

PATIENT
  Sex: Female

DRUGS (3)
  1. TAMOXIFEN CITRATE [Suspect]
     Indication: BREAST CANCER
     Route: 048
  2. ARIMIDEX [Suspect]
     Indication: BREAST CANCER
     Route: 048
  3. RADIATION THERAPY [Suspect]
     Indication: BREAST CANCER

REACTIONS (4)
  - HOT FLUSH [None]
  - MIGRAINE [None]
  - PAIN [None]
  - RADIATION PNEUMONITIS [None]
